FAERS Safety Report 9935578 (Version 4)
Quarter: 2014Q2

REPORT INFORMATION
  Report Type: Spontaneous
  Country: GB (occurrence: GB)
  Receive Date: 20140228
  Receipt Date: 20140519
  Transmission Date: 20141212
  Serious: Yes (Other)
  Sender: FDA-Public Use
  Company Number: GB-BAXTER-2014BAX009883

PATIENT
  Age: 1 Year
  Sex: Male

DRUGS (3)
  1. CEPROTIN 500 IU POWDER AND SOLVENT FOR SOLUTION FOR INJECTION [Suspect]
     Indication: PROTEIN C DEFICIENCY
     Route: 065
  2. CEPROTIN 1000 IU [Suspect]
     Indication: PROTEIN C DEFICIENCY
     Route: 065
  3. KIOVIG 100 MG/ML SOLUTION FOR INFUSION [Suspect]
     Indication: IMMUNE THROMBOCYTOPENIC PURPURA
     Route: 042

REACTIONS (5)
  - Disseminated intravascular coagulation [Unknown]
  - Sepsis [Unknown]
  - Purpura fulminans [Not Recovered/Not Resolved]
  - Urticaria [Unknown]
  - Drug effect decreased [Not Recovered/Not Resolved]
